FAERS Safety Report 5785898-7 (Version None)
Quarter: 2008Q2

REPORT INFORMATION
  Report Type: 
  Country: None (occurrence: None)
  Receive Date: 20080624
  Receipt Date: 20070625
  Transmission Date: 20081010
  Serious: Yes (Hospitalization, Other)
  Sender: FDA-Public Use
  Company Number: US-ASTRAZENECA-2007UW15095

PATIENT
  Age: 1 Year
  Sex: Male

DRUGS (7)
  1. PULMICORT RESPULES [Suspect]
     Dosage: 0.25 MG/DL  BID
     Route: 055
     Dates: start: 20060901
  2. PULMICORT RESPULES [Suspect]
     Dosage: 0.50 MG/DL BID
     Route: 055
  3. PULMICORT RESPULES [Suspect]
     Dosage: 0.50 MG/DL QD
     Route: 055
     Dates: end: 20070501
  4. ALBUTEROL [Concomitant]
  5. SINGULAIR [Concomitant]
  6. PREVACID [Concomitant]
  7. XOPENEX [Concomitant]

REACTIONS (3)
  - ASTHMA [None]
  - BRONCHIOLITIS [None]
  - GROWTH RETARDATION [None]
